FAERS Safety Report 9313633 (Version 1)
Quarter: 2013Q2

REPORT INFORMATION
  Report Type: Spontaneous
  Country: CN (occurrence: CN)
  Receive Date: 20130528
  Receipt Date: 20130528
  Transmission Date: 20140414
  Serious: Yes (Other)
  Sender: FDA-Public Use
  Company Number: CN-ELI_LILLY_AND_COMPANY-CN201210006559

PATIENT
  Sex: Female
  Weight: 10 kg

DRUGS (2)
  1. CECLOR [Suspect]
     Indication: VIRAL INFECTION
     Dosage: 62.5 MG, QD
     Route: 048
  2. GANCICLOVIR [Concomitant]
     Dosage: UNK
     Dates: start: 20110701

REACTIONS (3)
  - Oedema peripheral [Recovered/Resolved]
  - Hypoproteinaemia [Unknown]
  - Rash [Recovered/Resolved]
